FAERS Safety Report 4904565-2 (Version None)
Quarter: 2006Q1

REPORT INFORMATION
  Report Type: 
  Country: None (occurrence: None)
  Receive Date: 20060208
  Receipt Date: 20050914
  Transmission Date: 20060701
  Serious: No
  Sender: FDA-Public Use
  Company Number: S2005US13185

PATIENT
  Age: 32 Year
  Sex: Female

DRUGS (1)
  1. PAXIL [Suspect]
     Indication: DRUG USE FOR UNKNOWN INDICATION
     Route: 065

REACTIONS (1)
  - LABORATORY TEST ABNORMAL [None]
